FAERS Safety Report 12870544 (Version 1)
Quarter: 2016Q4

REPORT INFORMATION
  Report Type: Spontaneous
  Country: SE (occurrence: SE)
  Receive Date: 20161021
  Receipt Date: 20161021
  Transmission Date: 20170207
  Serious: Yes (Other)
  Sender: FDA-Public Use
  Company Number: SE-TEVA-700247ROM

PATIENT
  Age: 58 Year
  Sex: Female

DRUGS (3)
  1. CIPROFLOXACINE [Suspect]
     Active Substance: CIPROFLOXACIN
  2. PREDNISOLONE. [Suspect]
     Active Substance: PREDNISOLONE
  3. HYDROCORTISON NYCOMED [Suspect]
     Active Substance: HYDROCORTISONE

REACTIONS (1)
  - Tendon rupture [Not Recovered/Not Resolved]
